FAERS Safety Report 6336690-6 (Version None)
Quarter: 2009Q3

REPORT INFORMATION
  Report Type: 
  Country: None (occurrence: None)
  Receive Date: 20090901
  Receipt Date: 20090827
  Transmission Date: 20100115
  Serious: Yes (Hospitalization)
  Sender: FDA-Public Use
  Company Number: FR-MERCK-0908FRA00050

PATIENT
  Age: 72 Year
  Sex: Female

DRUGS (4)
  1. COSOPT [Suspect]
     Indication: GLAUCOMA
     Route: 047
     Dates: end: 20090727
  2. INDORAMIN HYDROCHLORIDE [Suspect]
     Route: 048
     Dates: start: 20090713, end: 20090727
  3. BRIMONIDINE TARTRATE [Suspect]
     Indication: GLAUCOMA
     Route: 047
     Dates: end: 20090727
  4. LATANOPROST [Concomitant]
     Indication: GLAUCOMA
     Route: 047

REACTIONS (2)
  - ATRIOVENTRICULAR BLOCK COMPLETE [None]
  - DRUG INTERACTION [None]
